FAERS Safety Report 5374560-0 (Version None)
Quarter: 2007Q2

REPORT INFORMATION
  Report Type: 
  Country: None (occurrence: None)
  Receive Date: 20070627
  Receipt Date: 20070627
  Transmission Date: 20071010
  Serious: No
  Sender: FDA-Public Use
  Company Number: None

PATIENT
  Age: 81 Year
  Sex: Male

DRUGS (1)
  1. TRAVOPROST [Suspect]
     Indication: GLAUCOMA
     Dosage: 1DROPS  HS  EYE
     Route: 047
     Dates: start: 20060526, end: 20070529

REACTIONS (2)
  - EYE IRRITATION [None]
  - OCULAR HYPERAEMIA [None]
